FAERS Safety Report 15351953 (Version 1)
Quarter: 2018Q3

REPORT INFORMATION
  Report Type: Spontaneous
  Country: RO (occurrence: RO)
  Receive Date: 20180905
  Receipt Date: 20180905
  Transmission Date: 20181010
  Serious: Yes (Other)
  Sender: FDA-Public Use
  Company Number: RO-ASTRAZENECA-2018SF06300

PATIENT
  Age: 45 Year
  Sex: Male

DRUGS (5)
  1. BRILIQUE [Suspect]
     Active Substance: TICAGRELOR
     Route: 048
  2. GABAPENTIN. [Concomitant]
     Active Substance: GABAPENTIN
  3. MILGAMMA [Concomitant]
     Active Substance: VITAMIN B
  4. ASA [Concomitant]
     Active Substance: ASPIRIN
  5. CONVERSION ENZYME INHIBITOR [Concomitant]

REACTIONS (4)
  - Ventricular fibrillation [Unknown]
  - Paraesthesia [Unknown]
  - Neuropathy peripheral [Recovered/Resolved]
  - Bradycardia [Unknown]
